FAERS Safety Report 7810151-7 (Version None)
Quarter: 2011Q4

REPORT INFORMATION
  Report Type: 
  Country: None (occurrence: None)
  Receive Date: 20111007
  Receipt Date: 20110922
  Transmission Date: 20120403
  Serious: Yes (Death)
  Sender: FDA-Public Use
  Company Number: OPIR20110051

PATIENT
  Age: 41 Year
  Sex: Male
  Weight: 107.9561 kg

DRUGS (5)
  1. METHADONE HCL [Suspect]
     Indication: BACK DISORDER
  2. MEPROBAMATE [Suspect]
     Indication: BACK DISORDER
  3. OPANA [Suspect]
     Indication: BACK DISORDER
  4. CARISOPRODOL [Suspect]
     Indication: BACK DISORDER
  5. FENTANYL [Suspect]
     Indication: BACK DISORDER

REACTIONS (10)
  - PULMONARY CONGESTION [None]
  - BRAIN OEDEMA [None]
  - CORONARY OSTIAL STENOSIS [None]
  - VISCERAL CONGESTION [None]
  - MULTIPLE DRUG OVERDOSE [None]
  - CHOLESTEROSIS [None]
  - ASPIRATION [None]
  - PULMONARY OEDEMA [None]
  - HEPATIC STEATOSIS [None]
  - SUDDEN DEATH [None]
